FAERS Safety Report 5874976-X (Version None)
Quarter: 2008Q3

REPORT INFORMATION
  Report Type: 
  Country: None (occurrence: None)
  Receive Date: 20080908
  Receipt Date: 20080908
  Transmission Date: 20090109
  Serious: Yes (Other)
  Sender: FDA-Public Use
  Company Number: None

PATIENT
  Age: 35 Year
  Sex: Female
  Weight: 81.1939 kg

DRUGS (1)
  1. TOPAMAX [Suspect]
     Indication: MIGRAINE
     Dosage: 25 MG QD PO
     Route: 048
     Dates: start: 20080826, end: 20080902

REACTIONS (5)
  - ANGLE CLOSURE GLAUCOMA [None]
  - CONFUSIONAL STATE [None]
  - DIZZINESS [None]
  - NAUSEA [None]
  - VOMITING [None]
